FAERS Safety Report 15701223 (Version 1)
Quarter: 2018Q4

REPORT INFORMATION
  Report Type: Spontaneous
  Country: US (occurrence: US)
  Receive Date: 20181207
  Receipt Date: 20181207
  Transmission Date: 20190205
  Serious: No
  Sender: FDA-Public Use
  Company Number: US-SEPTODONT-201704356

PATIENT

DRUGS (1)
  1. MEPIVACAINE HCL 2% W/LEVO [Suspect]
     Active Substance: LEVONORDEFRIN\MEPIVACAINE HYDROCHLORIDE
     Indication: LOCAL ANAESTHESIA

REACTIONS (1)
  - Drug ineffective [Unknown]
